FAERS Safety Report 6654577-6 (Version None)
Quarter: 2010Q1

REPORT INFORMATION
  Report Type: 
  Country: None (occurrence: None)
  Receive Date: 20100326
  Receipt Date: 20100319
  Transmission Date: 20100710
  Serious: Yes (Other)
  Sender: FDA-Public Use
  Company Number: US-ROCHE-684388

PATIENT
  Sex: Male
  Weight: 108.9 kg

DRUGS (1)
  1. PEG-INTERFERON A-2A (RO 25-8310) [Suspect]
     Indication: HEPATITIS C
     Dosage: FORM: INJECTION, TOOK ONE INJECTION
     Route: 065
     Dates: start: 20060101, end: 20060101

REACTIONS (2)
  - HEPATIC CIRRHOSIS [None]
  - HYPERSENSITIVITY [None]
